FAERS Safety Report 22175872 (Version 1)
Quarter: 2023Q2

REPORT INFORMATION
  Report Type: Spontaneous
  Country: US (occurrence: None)
  Receive Date: 20230404
  Receipt Date: 20230404
  Transmission Date: 20230722
  Serious: No
  Sender: FDA-Public Use
  Company Number: None

PATIENT
  Sex: Female

DRUGS (1)
  1. ACTEMRA [Suspect]
     Active Substance: TOCILIZUMAB
     Indication: Felty^s syndrome
     Dosage: OTHER FREQUENCY : EVERY OTHER WEEK;?
     Route: 058
     Dates: start: 20220322

REACTIONS (2)
  - Fall [None]
  - Hip fracture [None]
